FAERS Safety Report 5279982-4 (Version None)
Quarter: 2007Q1

REPORT INFORMATION
  Report Type: 
  Country: None (occurrence: None)
  Receive Date: 20070329
  Receipt Date: 20070319
  Transmission Date: 20070707
  Serious: Yes (Hospitalization)
  Sender: FDA-Public Use
  Company Number: JP-JNJFOC-20070204565

PATIENT
  Sex: Male
  Weight: 70 kg

DRUGS (6)
  1. LEVOFLOXACIN [Suspect]
     Indication: INFECTION PROPHYLAXIS
     Route: 048
     Dates: start: 20070124, end: 20070125
  2. PENTICILLIN [Suspect]
     Indication: INFECTION PROPHYLAXIS
     Route: 042
  3. STOGAR [Suspect]
     Indication: GASTRIC ULCER
     Route: 048
     Dates: start: 20070128, end: 20070203
  4. BUFFERIN [Concomitant]
     Indication: ATRIAL FIBRILLATION
     Route: 048
  5. HALFDIGOXIN [Concomitant]
     Indication: ATRIAL FIBRILLATION
     Route: 048
  6. BLOPRESS [Concomitant]
     Indication: HYPERTENSION
     Route: 048

REACTIONS (5)
  - BLOOD PRESSURE DECREASED [None]
  - ENTERITIS [None]
  - HENOCH-SCHONLEIN PURPURA [None]
  - MENTAL STATUS CHANGES [None]
  - PROTEIN-LOSING GASTROENTEROPATHY [None]
